FAERS Safety Report 4290193-1 (Version None)
Quarter: 2004Q1

REPORT INFORMATION
  Report Type: 
  Country: None (occurrence: None)
  Receive Date: 20040206
  Receipt Date: 20040116
  Transmission Date: 20041129
  Serious: Yes (Hospitalization)
  Sender: FDA-Public Use
  Company Number: 200314585BCC

PATIENT
  Age: 87 Year
  Sex: Female
  Weight: 52.1637 kg

DRUGS (8)
  1. ALEVE (CAPLET) [Suspect]
     Dosage: SEE IMAGE
     Route: 048
     Dates: start: 20031129, end: 20031207
  2. ALEVE (CAPLET) [Suspect]
     Dosage: SEE IMAGE
     Route: 048
     Dates: start: 20031128
  3. ALEVE (CAPLET) [Suspect]
     Dosage: SEE IMAGE
     Route: 048
     Dates: start: 20031208
  4. ALEVE [Suspect]
  5. ASPIRIN [Suspect]
     Dosage: 325 MG, QD, ORAL
     Route: 048
     Dates: end: 20031201
  6. TRIAMTERENE [Concomitant]
  7. ISOSORBIDE [Concomitant]
  8. VITAMIN D [Concomitant]

REACTIONS (2)
  - JOINT SWELLING [None]
  - PNEUMONIA [None]
